FAERS Safety Report 10403937 (Version 2)
Quarter: 2015Q3

REPORT INFORMATION
  Report Type: Spontaneous
  Country: US (occurrence: US)
  Receive Date: 20140822
  Receipt Date: 20150818
  Transmission Date: 20151125
  Serious: No
  Sender: FDA-Public Use
  Company Number: US-GILEAD-2014-0112909

PATIENT
  Age: 33 Year
  Sex: Female

DRUGS (8)
  1. LETAIRIS [Suspect]
     Active Substance: AMBRISENTAN
     Indication: COR PULMONALE CHRONIC
     Dosage: 10 MG, QD
     Route: 065
     Dates: start: 20130710
  2. TYVASO [Concomitant]
     Active Substance: TREPROSTINIL
  3. FUROSEMIDE. [Concomitant]
     Active Substance: FUROSEMIDE
  4. ORENITRAM [Suspect]
     Active Substance: TREPROSTINIL
     Indication: PRODUCT USED FOR UNKNOWN INDICATION
     Dosage: 6.875 MG, TID
     Route: 065
     Dates: start: 20140817
  5. ORENITRAM [Suspect]
     Active Substance: TREPROSTINIL
     Dosage: 6.75 MG, TID
     Route: 065
     Dates: start: 20140730
  6. DIGOXIN. [Concomitant]
     Active Substance: DIGOXIN
  7. POTASSIUM [Concomitant]
     Active Substance: POTASSIUM
  8. AMLODIPINE W/ATORVASTATIN [Concomitant]
     Active Substance: AMLODIPINE\ATORVASTATIN

REACTIONS (3)
  - Heart rate increased [Not Recovered/Not Resolved]
  - Headache [Not Recovered/Not Resolved]
  - Flushing [Not Recovered/Not Resolved]

NARRATIVE: CASE EVENT DATE: 20140817
